FAERS Safety Report 8288875-X (Version None)
Quarter: 2012Q2

REPORT INFORMATION
  Report Type: 
  Country: None (occurrence: None)
  Receive Date: 20120417
  Receipt Date: 20120412
  Transmission Date: 20120825
  Serious: Yes (Other)
  Sender: FDA-Public Use
  Company Number: US-TEVA-330737USA

PATIENT
  Sex: Female
  Weight: 78.088 kg

DRUGS (1)
  1. ACTIQ [Suspect]
     Indication: COMPLEX REGIONAL PAIN SYNDROME
     Dosage: 2400 MICROGRAM;
     Route: 002

REACTIONS (3)
  - SURGERY [None]
  - OFF LABEL USE [None]
  - TOOTH EXTRACTION [None]
